FAERS Safety Report 20688270 (Version 12)
Quarter: 2025Q1

REPORT INFORMATION
  Report Type: Report from Study
  Country: GB (occurrence: GB)
  Receive Date: 20220408
  Receipt Date: 20250310
  Transmission Date: 20250409
  Serious: Yes (Other)
  Sender: NOVARTIS
  Company Number: GB-NOVARTISPH-NVSC2022GB005474

PATIENT
  Sex: Female

DRUGS (4)
  1. MAYZENT [Suspect]
     Active Substance: SIPONIMOD
     Indication: Multiple sclerosis
     Dosage: 2 MG, QD
     Route: 048
     Dates: start: 20211025
  2. MAYZENT [Suspect]
     Active Substance: SIPONIMOD
     Indication: Secondary progressive multiple sclerosis
     Dosage: 2 MG, QD
     Route: 048
     Dates: start: 20220110
  3. MAYZENT [Suspect]
     Active Substance: SIPONIMOD
     Dosage: 2 MG, QD
     Route: 048
  4. MAYZENT [Suspect]
     Active Substance: SIPONIMOD
     Dosage: 1 MG, QD
     Route: 048

REACTIONS (16)
  - Lymphocyte count decreased [Not Recovered/Not Resolved]
  - Visual impairment [Recovered/Resolved]
  - COVID-19 [Recovering/Resolving]
  - Cough [Unknown]
  - Dizziness [Recovered/Resolved]
  - Paraesthesia [Unknown]
  - Pyrexia [Recovered/Resolved]
  - White blood cell count decreased [Recovering/Resolving]
  - Illness [Recovered/Resolved]
  - Headache [Recovered/Resolved]
  - Pain in extremity [Unknown]
  - Eye pain [Not Recovered/Not Resolved]
  - Skin mass [Unknown]
  - Headache [Not Recovered/Not Resolved]
  - Molluscum contagiosum [Not Recovered/Not Resolved]
  - Visual field defect [Not Recovered/Not Resolved]

NARRATIVE: CASE EVENT DATE: 20220101
